FAERS Safety Report 7353407-7 (Version None)
Quarter: 2011Q1

REPORT INFORMATION
  Report Type: 
  Country: None (occurrence: None)
  Receive Date: 20110310
  Receipt Date: 20110310
  Transmission Date: 20110831
  Serious: Yes (Hospitalization)
  Sender: FDA-Public Use
  Company Number: None

PATIENT
  Age: 63 Year
  Sex: Male
  Weight: 72 kg

DRUGS (1)
  1. ITRACONAZOLE [Suspect]
     Indication: ASPERGILLOSIS
     Dosage: 200 MG BID PO
     Route: 048
     Dates: start: 20101215, end: 20110112

REACTIONS (8)
  - CONFUSIONAL STATE [None]
  - HALLUCINATION [None]
  - SEPSIS [None]
  - DELIRIUM [None]
  - AGITATION [None]
  - MENTAL STATUS CHANGES [None]
  - SEDATION [None]
  - HEPATIC ENZYME INCREASED [None]
